FAERS Safety Report 25051671 (Version 1)
Quarter: 2025Q1

REPORT INFORMATION
  Report Type: Spontaneous
  Country: FR (occurrence: FR)
  Receive Date: 20250307
  Receipt Date: 20250307
  Transmission Date: 20250409
  Serious: Yes (Hospitalization)
  Sender: NOVARTIS
  Company Number: None

PATIENT
  Age: 53 Year
  Sex: Male

DRUGS (2)
  1. GLEEVEC [Interacting]
     Active Substance: IMATINIB MESYLATE
     Indication: Chronic myeloid leukaemia
     Dosage: 400 MG, QD, (400MG/J)
     Route: 048
     Dates: start: 201301
  2. XARELTO [Interacting]
     Active Substance: RIVAROXABAN
     Indication: Haemangioma
     Dosage: 30 MG, QD, (15MGX2/J)
     Route: 048
     Dates: start: 20250205, end: 20250216

REACTIONS (3)
  - Haematoma [Not Recovered/Not Resolved]
  - Drug interaction [Recovered/Resolved]
  - Drug interaction [Recovered/Resolved]

NARRATIVE: CASE EVENT DATE: 20250205
